FAERS Safety Report 7426995-X (Version None)
Quarter: 2011Q2

REPORT INFORMATION
  Report Type: 
  Country: None (occurrence: None)
  Receive Date: 20110420
  Receipt Date: 20110321
  Transmission Date: 20111010
  Serious: Yes (Other)
  Sender: FDA-Public Use
  Company Number: US-BAYER-2010-001623

PATIENT
  Age: 37 Year
  Sex: Female
  Weight: 60.317 kg

DRUGS (3)
  1. YASMIN [Suspect]
  2. OCELLA [Suspect]
  3. IBUPROFEN [Concomitant]
     Dosage: UNK
     Dates: start: 20041101, end: 20071101

REACTIONS (3)
  - CHOLECYSTITIS CHRONIC [None]
  - GALLBLADDER INJURY [None]
  - GALLBLADDER DISORDER [None]
